FAERS Safety Report 19574072 (Version 3)
Quarter: 2021Q4

REPORT INFORMATION
  Report Type: Report from Study
  Country: CA (occurrence: CA)
  Receive Date: 20210718
  Receipt Date: 20211026
  Transmission Date: 20220303
  Serious: Yes (Hospitalization, Other)
  Sender: FDA-Public Use
  Company Number: CA-JNJFOC-20210729402

PATIENT
  Age: 70 Year
  Sex: Male

DRUGS (1)
  1. SIMPONI [Suspect]
     Active Substance: GOLIMUMAB
     Indication: Ankylosing spondylitis
     Dosage: STRENGTH = 50 MG, NEXT DOSE SCHEDULED ON 27-JUL-2021
     Route: 058
     Dates: start: 20191227

REACTIONS (2)
  - Prostate cancer [Not Recovered/Not Resolved]
  - Diarrhoea [Recovered/Resolved]

NARRATIVE: CASE EVENT DATE: 20210713
